FAERS Safety Report 25058698 (Version 2)
Quarter: 2025Q2

REPORT INFORMATION
  Report Type: Spontaneous
  Country: JP (occurrence: JP)
  Receive Date: 20250310
  Receipt Date: 20250403
  Transmission Date: 20250717
  Serious: Yes (Hospitalization, Other)
  Sender: MERCK SHARP AND DOHME
  Company Number: JP-MSD-2502JPN000598J

PATIENT
  Age: 8 Decade
  Sex: Male

DRUGS (4)
  1. KEYTRUDA [Suspect]
     Active Substance: PEMBROLIZUMAB
     Indication: Renal cell carcinoma
     Dosage: DOSE DESCRIPTION : 200 MILLIGRAM, Q3W?DAILY DOSE : 9.4 MILLIGRAM?REGIMEN DOSE : 200  MILLIGRAM
     Route: 041
     Dates: start: 20250116
  2. LENVATINIB MESYLATE [Suspect]
     Active Substance: LENVATINIB MESYLATE
     Indication: Renal cell carcinoma
     Dosage: DOSE DESCRIPTION : 20 MILLIGRAM, QD?DAILY DOSE : 20 MILLIGRAM?CONCENTRATION: 10 MILLIGRAM
     Route: 048
     Dates: start: 20250116, end: 20250206
  3. LENVATINIB MESYLATE [Suspect]
     Active Substance: LENVATINIB MESYLATE
     Indication: Renal cell carcinoma
     Dosage: 14MG ONCE A DAY, DOSE DECREASED
     Route: 048
     Dates: start: 20250207, end: 20250215
  4. LENVATINIB MESYLATE [Suspect]
     Active Substance: LENVATINIB MESYLATE
     Indication: Renal cell carcinoma
     Dosage: 10MG ONCE A DAY, DOSE DECREASED
     Route: 048
     Dates: start: 20250313

REACTIONS (4)
  - Diarrhoea [Recovered/Resolved]
  - Blood potassium increased [Recovered/Resolved]
  - Blood pressure increased [Recovered/Resolved]
  - Malaise [Recovered/Resolved]

NARRATIVE: CASE EVENT DATE: 20250120
